FAERS Safety Report 18352351 (Version 5)
Quarter: 2020Q4

REPORT INFORMATION
  Report Type: Report from Study
  Country: None (occurrence: ES)
  Receive Date: 20201007
  Receipt Date: 20201208
  Transmission Date: 20210114
  Serious: Yes (Other)
  Sender: FDA-Public Use
  Company Number: ES-ABBVIE-20K-144-3595845-00

PATIENT
  Sex: Male
  Weight: 89 kg

DRUGS (4)
  1. DUODOPA [Suspect]
     Active Substance: CARBIDOPA\LEVODOPA
     Dosage: CONTINUOUS DOSE 5.2 ML/H
     Route: 050
     Dates: start: 2020
  2. SINEMET [Concomitant]
     Active Substance: CARBIDOPA\LEVODOPA
     Indication: PARKINSON^S DISEASE
     Dosage: EVERY 24H (+ONE IF NEEDED AT NIGHT),AT 22:00 AND 1 IF NECESSARY
     Route: 048
  3. DUODOPA [Suspect]
     Active Substance: CARBIDOPA\LEVODOPA
     Indication: PARKINSON^S DISEASE
     Dosage: CONTINUOUS DOSE 5 ML/H
     Route: 050
     Dates: start: 20191024, end: 2020
  4. DEPRAX [Concomitant]
     Indication: PRODUCT USED FOR UNKNOWN INDICATION
     Dosage: 0.5 OR 1 AT NIGHT
     Route: 048

REACTIONS (10)
  - Somnolence [Not Recovered/Not Resolved]
  - Intentional product misuse [Unknown]
  - Nervousness [Recovering/Resolving]
  - General symptom [Not Recovered/Not Resolved]
  - Gait inability [Recovering/Resolving]
  - Fatigue [Unknown]
  - Sleep disorder [Unknown]
  - Abdominal pain upper [Not Recovered/Not Resolved]
  - Flatulence [Unknown]
  - On and off phenomenon [Recovering/Resolving]

NARRATIVE: CASE EVENT DATE: 2020
